FAERS Safety Report 7451025-3 (Version None)
Quarter: 2011Q2

REPORT INFORMATION
  Report Type: 
  Country: None (occurrence: None)
  Receive Date: 20110422
  Receipt Date: 20110413
  Transmission Date: 20111010
  Serious: Yes (Hospitalization)
  Sender: FDA-Public Use
  Company Number: TRP_07684_2011

PATIENT
  Sex: Male

DRUGS (4)
  1. PEGINTERFERON ALFA-2A [Suspect]
     Indication: HEPATITIS C
     Dosage: DF
  2. RIBASPHERE [Suspect]
     Indication: HEPATITIS C
     Dosage: DF,
     Dates: end: 20100401
  3. CELEXA [Concomitant]
  4. SUBOXONE [Suspect]
     Indication: DRUG DEPENDENCE
     Dosage: DF

REACTIONS (2)
  - MATERNAL DRUGS AFFECTING FOETUS [None]
  - DRUG WITHDRAWAL SYNDROME NEONATAL [None]
